FAERS Safety Report 4560310-4 (Version None)
Quarter: 2005Q1

REPORT INFORMATION
  Report Type: 
  Country: None (occurrence: None)
  Receive Date: 20050125
  Receipt Date: 20041012
  Transmission Date: 20050727
  Serious: Yes (Other)
  Sender: FDA-Public Use
  Company Number: 200413869FR

PATIENT
  Age: 84 Year
  Sex: Male
  Weight: 75 kg

DRUGS (14)
  1. KETEK [Suspect]
     Indication: BRONCHITIS
     Route: 048
     Dates: start: 20040927, end: 20040930
  2. KETEK [Suspect]
     Indication: SUPERINFECTION
     Route: 048
     Dates: start: 20040927, end: 20040930
  3. AMLOR [Suspect]
     Route: 048
  4. FONZYLANE [Suspect]
     Route: 048
     Dates: start: 20040927
  5. LANTUS [Concomitant]
     Indication: DIABETES MELLITUS
  6. COTAREG [Concomitant]
     Indication: HYPERTENSION
     Route: 048
  7. GLIBENESE [Concomitant]
     Indication: DIABETES MELLITUS
     Route: 048
  8. LIPANTHYL [Concomitant]
     Route: 048
  9. STABLON [Concomitant]
     Route: 048
  10. PERMIXON [Concomitant]
     Route: 048
  11. KARDEGIC [Concomitant]
     Route: 048
  12. VASTAREL [Concomitant]
     Route: 048
  13. NOCTAMIDE [Concomitant]
  14. SYMBICORT [Concomitant]

REACTIONS (6)
  - BLOOD PRESSURE FLUCTUATION [None]
  - HEADACHE [None]
  - HYPOTENSION [None]
  - NAUSEA [None]
  - PULSE ABNORMAL [None]
  - SYNCOPE [None]
